FAERS Safety Report 6539784-5 (Version None)
Quarter: 2010Q1

REPORT INFORMATION
  Report Type: 
  Country: None (occurrence: None)
  Receive Date: 20100115
  Receipt Date: 20100106
  Transmission Date: 20100710
  Serious: Yes (Death, Hospitalization)
  Sender: FDA-Public Use
  Company Number: HU-PFIZER INC-2010001959

PATIENT
  Age: 56 Year
  Sex: Female
  Weight: 85 kg

DRUGS (3)
  1. SUNITINIB MALATE [Suspect]
     Indication: BREAST CANCER
     Dosage: 37.5 MG, 1X/DAY
     Route: 048
     Dates: start: 20091012
  2. XELODA [Suspect]
     Indication: BREAST CANCER
     Dosage: 2000 MG, EVERY 3 WEEKS
     Route: 048
     Dates: start: 20090512, end: 20090803
  3. METHYLPREDNISOLONE [Concomitant]
     Indication: LEUKOPENIA
     Dosage: 8 MG, 1X/DAY
     Route: 048
     Dates: start: 20091116, end: 20100101

REACTIONS (2)
  - ASTHENIA [None]
  - DEATH [None]
